FAERS Safety Report 10513685 (Version 3)
Quarter: 2015Q1

REPORT INFORMATION
  Report Type: Spontaneous
  Country: US (occurrence: US)
  Receive Date: 20141013
  Receipt Date: 20150217
  Transmission Date: 20150720
  Serious: Yes (Death, Other)
  Sender: FDA-Public Use
  Company Number: US-GLAXOSMITHKLINE-US2014GSK003069

PATIENT
  Age: 73 Year
  Sex: Male

DRUGS (3)
  1. VOTRIENT [Suspect]
     Active Substance: PAZOPANIB HYDROCHLORIDE
     Indication: RENAL CANCER METASTATIC
     Dosage: UNK, U
     Route: 065
     Dates: start: 201309
  2. VOTRIENT [Suspect]
     Active Substance: PAZOPANIB HYDROCHLORIDE
     Indication: LUNG CANCER METASTATIC
  3. VOTRIENT [Suspect]
     Active Substance: PAZOPANIB HYDROCHLORIDE
     Indication: HEPATIC CANCER METASTATIC

REACTIONS (4)
  - Fall [Unknown]
  - Neoplasm malignant [Fatal]
  - Wound [Unknown]
  - Hip fracture [Unknown]

NARRATIVE: CASE EVENT DATE: 201403
